FAERS Safety Report 24860087 (Version 3)
Quarter: 2025Q3

REPORT INFORMATION
  Report Type: Spontaneous
  Country: EU (occurrence: EU)
  Receive Date: 20250120
  Receipt Date: 20250827
  Transmission Date: 20251020
  Serious: Yes (Life-Threatening, Hospitalization)
  Sender: BIOGEN
  Company Number: EU-BIOGEN-2025BI01297338

PATIENT
  Age: 43 Year
  Sex: Male
  Weight: 85 kg

DRUGS (1)
  1. OMAVELOXOLONE [Suspect]
     Active Substance: OMAVELOXOLONE
     Indication: Friedreich^s ataxia
     Dosage: PLANNED POSOLOGY: 150MG ONCE PER DAY (3 CAPSULES OF 50MG) PLANNED DURATION: SINGLE ADMINISTRATION
     Route: 050
     Dates: start: 20240412, end: 20250113

REACTIONS (3)
  - Phlebitis [Unknown]
  - Deep vein thrombosis [Not Recovered/Not Resolved]
  - Pulmonary embolism [Recovered/Resolved with Sequelae]
